FAERS Safety Report 19490718 (Version 1)
Quarter: 2021Q3

REPORT INFORMATION
  Report Type: Spontaneous
  Country: NL (occurrence: NL)
  Receive Date: 20210705
  Receipt Date: 20210705
  Transmission Date: 20211014
  Serious: Yes (Other)
  Sender: FDA-Public Use
  Company Number: NL-TEVA-2021-NL-1929399

PATIENT
  Age: 61 Year
  Sex: Female
  Weight: 84.6 kg

DRUGS (2)
  1. PACLITAXEL / BRAND NAME NOT SPECIFIED [Suspect]
     Active Substance: PACLITAXEL
     Indication: CHEMOTHERAPY
     Dosage: 80MG/M2,THERAPY END DATE ASKU
     Dates: start: 20210426
  2. TRASTUZUMAB INJVLST 120MG/ML (HERCEPTIN) / BRAND NAME NOT SPECIFIED [Concomitant]
     Dosage: THERAPY START DATE ASKU, THERAPY END DATE ASKU

REACTIONS (2)
  - Pulmonary embolism [Recovering/Resolving]
  - Deep vein thrombosis [Recovering/Resolving]

NARRATIVE: CASE EVENT DATE: 20210525
